FAERS Safety Report 19027586 (Version 1)
Quarter: 2021Q1

REPORT INFORMATION
  Report Type: Spontaneous
  Country: US (occurrence: US)
  Receive Date: 20210319
  Receipt Date: 20210319
  Transmission Date: 20210420
  Serious: Yes (Death, Other)
  Sender: FDA-Public Use
  Company Number: US-AMGEN-USASP2021040530

PATIENT

DRUGS (2)
  1. FILGRASTIM [Suspect]
     Active Substance: FILGRASTIM
     Indication: HAEMATOPOIETIC STEM CELL MOBILISATION
     Dosage: 10 MICROGRAM/KILOGRAM, QD
     Route: 065
  2. PLERIXAFOR [Concomitant]
     Active Substance: PLERIXAFOR
     Indication: HAEMATOPOIETIC STEM CELL MOBILISATION
     Dosage: 0.24 MILLIGRAM/KILOGRAM
     Route: 058

REACTIONS (6)
  - Respiratory arrest [Fatal]
  - Disease progression [Fatal]
  - Plasma cell myeloma [Unknown]
  - Drug ineffective [Unknown]
  - Pulmonary embolism [Unknown]
  - Atrial fibrillation [Unknown]
